FAERS Safety Report 8935618 (Version 1)
Quarter: 2012Q4

REPORT INFORMATION
  Report Type: 
  Country: BR (occurrence: BR)
  Receive Date: 20121130
  Receipt Date: 20121130
  Transmission Date: 20130627
  Serious: Yes (Other)
  Sender: FDA-Public Use
  Company Number: PHHY2012BR109539

PATIENT
  Sex: Female

DRUGS (2)
  1. FORASEQ [Suspect]
     Indication: TUBERCULOSIS
     Dosage: 1 DF, BID
  2. SERETIDE [Suspect]
     Dosage: UNK UKN, UNK

REACTIONS (3)
  - Pulmonary mass [Unknown]
  - Dyspnoea [Unknown]
  - Hypersensitivity [Unknown]
